FAERS Safety Report 22246382 (Version 6)
Quarter: 2023Q4

REPORT INFORMATION
  Report Type: Spontaneous
  Country: CA (occurrence: CA)
  Receive Date: 20230424
  Receipt Date: 20231114
  Transmission Date: 20240110
  Serious: Yes (Death, Hospitalization, Other)
  Sender: FDA-Public Use
  Company Number: CA-PFIZER INC-202200374541

PATIENT
  Age: 37 Year
  Sex: Male

DRUGS (9)
  1. RUXIENCE [Suspect]
     Active Substance: RITUXIMAB-PVVR
     Indication: Granulomatosis with polyangiitis
     Dosage: 1000 MG DAY 0, AND DAY 14
     Route: 042
     Dates: start: 20220621, end: 20220704
  2. RUXIENCE [Suspect]
     Active Substance: RITUXIMAB-PVVR
     Indication: Stevens-Johnson syndrome
     Dosage: 1000 MG, DAY 0, AND DAY 14
     Route: 042
     Dates: start: 20221205, end: 20221219
  3. RUXIENCE [Suspect]
     Active Substance: RITUXIMAB-PVVR
     Dosage: 1000 MG (SUBSEQUENT 1000MG, 2 DOSES) DAY 0, AND DAY 14
     Route: 042
     Dates: start: 20221219
  4. RUXIENCE [Suspect]
     Active Substance: RITUXIMAB-PVVR
     Dosage: 1000 MG DAY 0 AND DAY 14
     Route: 042
     Dates: start: 20230519
  5. RUXIENCE [Suspect]
     Active Substance: RITUXIMAB-PVVR
     Dosage: 1000 MG DAY 0 AND DAY 14
     Route: 042
     Dates: start: 20230519, end: 20230628
  6. RUXIENCE [Suspect]
     Active Substance: RITUXIMAB-PVVR
     Dosage: 1000 MG DAY 0 AND DAY 14 (5 WEEKS AND 5 DAYS)
     Route: 042
     Dates: start: 20230628
  7. FOLIC ACID [Concomitant]
     Active Substance: FOLIC ACID
     Dosage: UNK
  8. PREDNISONE [Concomitant]
     Active Substance: PREDNISONE
     Dosage: UNK
  9. METHOTREXATE [Concomitant]
     Active Substance: METHOTREXATE
     Dosage: 25 MG, WEEKLY
     Route: 058

REACTIONS (7)
  - Death [Fatal]
  - Pneumonia bacterial [Recovered/Resolved]
  - Staphylococcal infection [Unknown]
  - Eye disorder [Unknown]
  - Mycobacterium tuberculosis complex test positive [Unknown]
  - Off label use [Unknown]
  - Inappropriate schedule of product administration [Unknown]

NARRATIVE: CASE EVENT DATE: 20221219
